FAERS Safety Report 24840969 (Version 1)
Quarter: 2025Q1

REPORT INFORMATION
  Report Type: Spontaneous
  Country: TR (occurrence: TR)
  Receive Date: 20250114
  Receipt Date: 20250114
  Transmission Date: 20250409
  Serious: Yes (Hospitalization, Other)
  Sender: MERCK
  Company Number: TR-009507513-2501TUR002024

PATIENT
  Age: 67 Year
  Sex: Male

DRUGS (1)
  1. PEMBROLIZUMAB [Suspect]
     Active Substance: PEMBROLIZUMAB
     Indication: Small cell lung cancer metastatic

REACTIONS (5)
  - Diplopia [Unknown]
  - Eyelid ptosis [Unknown]
  - Immune-mediated myositis [Unknown]
  - Immune-mediated myocarditis [Not Recovered/Not Resolved]
  - Product use in unapproved indication [Unknown]
